FAERS Safety Report 6005895-6 (Version None)
Quarter: 2008Q4

REPORT INFORMATION
  Report Type: 
  Country: None (occurrence: None)
  Receive Date: 20081217
  Receipt Date: 20081215
  Transmission Date: 20090506
  Serious: Yes (Other)
  Sender: FDA-Public Use
  Company Number: US-GILEAD-2008-0019202

PATIENT
  Sex: Female
  Weight: 64.922 kg

DRUGS (31)
  1. LETAIRIS [Suspect]
     Indication: PULMONARY HYPERTENSION
     Route: 048
     Dates: start: 20080825, end: 20081001
  2. TOPROL-XL [Concomitant]
  3. COREG [Concomitant]
  4. LISINOPRIL [Concomitant]
  5. DIGITEK [Concomitant]
  6. OXYGEN [Concomitant]
  7. TORSEMIDE [Concomitant]
  8. NITROGLYCERIN [Concomitant]
  9. PREDNISONE TAB [Concomitant]
  10. DUONEB [Concomitant]
  11. SPIRIVA [Concomitant]
  12. PHENERGAN HCL [Concomitant]
  13. ADVAIR DISKUS 250/50 [Concomitant]
  14. ASACOL [Concomitant]
  15. NEXIUM [Concomitant]
  16. XANAX [Concomitant]
  17. TRAZODONE HCL [Concomitant]
  18. SEROQUEL [Concomitant]
  19. ALLOPURINOL [Concomitant]
  20. LEXAPRO [Concomitant]
  21. DURAGESIC-100 [Concomitant]
  22. TYLENOL (CAPLET) [Concomitant]
  23. TUSSIONEX [Concomitant]
  24. ACTONEL [Concomitant]
  25. OSCAL [Concomitant]
  26. LORTAB [Concomitant]
  27. COLCHICINE [Concomitant]
  28. KLOR-CON [Concomitant]
  29. FOLIC ACID [Concomitant]
  30. VITAMIN B-12 [Concomitant]
  31. FISH OIL [Concomitant]

REACTIONS (5)
  - CARDIAC FAILURE CONGESTIVE [None]
  - NASAL CONGESTION [None]
  - OEDEMA [None]
  - PULMONARY CONGESTION [None]
  - WEIGHT INCREASED [None]
